FAERS Safety Report 7651377-5 (Version None)
Quarter: 2011Q3

REPORT INFORMATION
  Report Type: 
  Country: None (occurrence: None)
  Receive Date: 20110802
  Receipt Date: 20110721
  Transmission Date: 20111222
  Serious: Yes (Other)
  Sender: FDA-Public Use
  Company Number: PHFR2011GB04348

PATIENT
  Sex: Male

DRUGS (1)
  1. CLOZAPINE [Suspect]
     Route: 065
     Dates: start: 19980708

REACTIONS (2)
  - WHITE BLOOD CELL COUNT INCREASED [None]
  - LYMPHOCYTE COUNT INCREASED [None]
